FAERS Safety Report 9748716 (Version 1)
Quarter: 2013Q4

REPORT INFORMATION
  Report Type: Spontaneous
  Country: RO (occurrence: None)
  Receive Date: 20131209
  Receipt Date: 20131209
  Transmission Date: 20140711
  Serious: Yes (Hospitalization)
  Sender: FDA-Public Use
  Company Number: MAC2013000745

PATIENT
  Age: 70 Year
  Sex: Female

DRUGS (3)
  1. PANTOPRAZOLE [Suspect]
     Indication: HELICOBACTER INFECTION
  2. CLARITHROMYCIN [Suspect]
     Indication: HELICOBACTER INFECTION
  3. AMOXICILLIN [Suspect]
     Indication: HELICOBACTER INFECTION

REACTIONS (6)
  - Pseudomembranous colitis [None]
  - Blood sodium decreased [None]
  - Blood potassium decreased [None]
  - Diverticulum intestinal [None]
  - Clostridium test positive [None]
  - Therapeutic response unexpected [None]
